FAERS Safety Report 18281361 (Version 2)
Quarter: 2020Q4

REPORT INFORMATION
  Report Type: Spontaneous
  Country: US (occurrence: US)
  Receive Date: 20200918
  Receipt Date: 20201027
  Transmission Date: 20210113
  Serious: Yes (Hospitalization, Other)
  Sender: FDA-Public Use
  Company Number: US-ALVOGEN-2020-ALVOGEN-114250

PATIENT
  Age: 70 Year
  Sex: Male
  Weight: 103.64 kg

DRUGS (3)
  1. GLIMEPIRIDE. [Suspect]
     Active Substance: GLIMEPIRIDE
     Indication: PRODUCT USED FOR UNKNOWN INDICATION
     Dates: end: 2020
  2. LISINOPRIL AND HYDROCHLOROTHIAZIDE [Suspect]
     Active Substance: HYDROCHLOROTHIAZIDE\LISINOPRIL
     Indication: PRODUCT USED FOR UNKNOWN INDICATION
  3. GOCOVRI [Suspect]
     Active Substance: AMANTADINE
     Indication: DYSKINESIA
     Dosage: 1X/DAY, AT BEDTIME
     Route: 048
     Dates: start: 20200714, end: 20200723

REACTIONS (7)
  - Nausea [Not Recovered/Not Resolved]
  - Product dose omission issue [Unknown]
  - Transcatheter aortic valve implantation [Recovering/Resolving]
  - Aortic stenosis [Recovering/Resolving]
  - Micturition frequency decreased [Unknown]
  - Renal impairment [Recovered/Resolved]
  - Hypoglycaemia [Recovered/Resolved]

NARRATIVE: CASE EVENT DATE: 20200902
